FAERS Safety Report 9048158 (Version 1)
Quarter: 2013Q1

REPORT INFORMATION
  Report Type: Spontaneous
  Country: FR (occurrence: FR)
  Receive Date: 20130204
  Receipt Date: 20130204
  Transmission Date: 20140127
  Serious: Yes (Life-Threatening, Hospitalization, Other)
  Sender: FDA-Public Use
  Company Number: FR-009507513-1301FRA012669

PATIENT
  Age: 70 None
  Sex: Male

DRUGS (6)
  1. ESMERON [Suspect]
     Indication: ADJUVANT THERAPY
     Dosage: UNK
     Route: 042
     Dates: start: 20110608, end: 20110608
  2. ESMERON [Suspect]
     Indication: ANAESTHESIA
  3. DIPRIVAN [Concomitant]
     Indication: INDUCTION OF ANAESTHESIA
     Dosage: UNK
     Dates: start: 20110608
  4. SUFENTANIL [Concomitant]
     Indication: INDUCTION OF ANAESTHESIA
     Dosage: UNK
     Dates: start: 20110608
  5. SERETIDE [Concomitant]
  6. ATROVENT [Concomitant]

REACTIONS (4)
  - Bradyarrhythmia [Recovered/Resolved]
  - Generalised erythema [Recovered/Resolved]
  - Bronchospasm [Recovered/Resolved]
  - Shock [Recovered/Resolved]
